FAERS Safety Report 8623558-5 (Version None)
Quarter: 2012Q3

REPORT INFORMATION
  Report Type: 
  Country: None (occurrence: None)
  Receive Date: 20120827
  Receipt Date: 20120712
  Transmission Date: 20120928
  Serious: No
  Sender: FDA-Public Use
  Company Number: US-MYLANLABS-2012S1014400

PATIENT
  Age: 70 Year
  Sex: Female
  Weight: 49.9 kg

DRUGS (6)
  1. ASPIRIN [Concomitant]
     Route: 048
  2. FISH OIL [Concomitant]
     Route: 048
  3. FLAX SEED OIL [Concomitant]
     Route: 048
  4. LANSOPRAZOLE [Suspect]
     Indication: GASTROOESOPHAGEAL REFLUX DISEASE
     Route: 048
     Dates: start: 20120626
  5. VITAMIN D [Concomitant]
     Route: 048
  6. CALCIUM [Concomitant]
     Route: 048

REACTIONS (1)
  - PHARYNGITIS [None]
